FAERS Safety Report 4488622-3 (Version None)
Quarter: 2004Q4

REPORT INFORMATION
  Report Type: 
  Country: None (occurrence: None)
  Receive Date: 20041026
  Receipt Date: 20041008
  Transmission Date: 20050328
  Serious: Yes (Other)
  Sender: FDA-Public Use
  Company Number: USA041080701

PATIENT
  Sex: Male

DRUGS (6)
  1. HUMULIN N [Suspect]
  2. HUMULIN R [Suspect]
  3. ACTOS [Concomitant]
  4. METFORMIN [Concomitant]
  5. GLUCOPHAGE [Concomitant]
  6. AMARYL [Concomitant]

REACTIONS (6)
  - BLOOD GLUCOSE INCREASED [None]
  - CEREBROVASCULAR ACCIDENT [None]
  - DIZZINESS [None]
  - HYPERHIDROSIS [None]
  - HYPERTENSION [None]
  - RENAL DISORDER [None]
